FAERS Safety Report 11801989 (Version 1)
Quarter: 2015Q4

REPORT INFORMATION
  Report Type: Spontaneous
  Country: DK (occurrence: DK)
  Receive Date: 20151204
  Receipt Date: 20151204
  Transmission Date: 20160305
  Serious: Yes (Other)
  Sender: FDA-Public Use
  Company Number: DK-MYLANLABS-2015M1042508

PATIENT

DRUGS (4)
  1. VINORELBINE [Suspect]
     Active Substance: VINORELBINE\VINORELBINE TARTRATE
     Dosage: 80 MG/M2 ON DAY 8 EVERY 3 WEEKS
     Route: 065
  2. BEVACIZUMAB [Suspect]
     Active Substance: BEVACIZUMAB
     Indication: NON-SMALL CELL LUNG CANCER
     Dosage: 7.5 MG/KG ON DAY 1 AND DAY 8 EVERY 3 WEEKS
     Route: 042
  3. CARBOPLATIN. [Suspect]
     Active Substance: CARBOPLATIN
     Indication: NON-SMALL CELL LUNG CANCER
     Dosage: AT AN AREA UNDER THE CURVE OF 5 ON DAY 1 AND DAY 8 EVERY 3 WEEKS
     Route: 042
  4. VINORELBINE [Suspect]
     Active Substance: VINORELBINE\VINORELBINE TARTRATE
     Indication: NON-SMALL CELL LUNG CANCER
     Dosage: 60 MG/M2 ON DAY 1 EVERY 3 WEEKS
     Route: 048

REACTIONS (1)
  - Deep vein thrombosis [Unknown]
